FAERS Safety Report 6620176-5 (Version None)
Quarter: 2010Q1

REPORT INFORMATION
  Report Type: 
  Country: None (occurrence: None)
  Receive Date: 20100309
  Receipt Date: 20100301
  Transmission Date: 20100710
  Serious: Yes (Hospitalization, Other)
  Sender: FDA-Public Use
  Company Number: US-BAXTER-2010BH001480

PATIENT
  Sex: Male
  Weight: 73 kg

DRUGS (4)
  1. HEPARIN SODIUM INJECTION [Suspect]
     Indication: VASCULAR GRAFT
     Route: 065
     Dates: start: 20041015
  2. HEPARIN SODIUM INJECTION [Suspect]
     Route: 065
     Dates: start: 20041016
  3. HEPARIN SODIUM INJECTION [Suspect]
     Route: 065
     Dates: start: 20041021
  4. HEPARIN SODIUM INJECTION [Suspect]
     Route: 065
     Dates: start: 20041022

REACTIONS (2)
  - BLINDNESS [None]
  - THROMBOSIS [None]
